FAERS Safety Report 9848800 (Version 1)
Quarter: 2014Q1

REPORT INFORMATION
  Report Type: Spontaneous
  Country: US (occurrence: None)
  Receive Date: 20140127
  Receipt Date: 20140127
  Transmission Date: 20141002
  Serious: Yes (Other)
  Sender: FDA-Public Use
  Company Number: None

PATIENT
  Age: 47 Year
  Sex: 0
  Weight: 63.5 kg

DRUGS (1)
  1. CLINDAMYCIN [Suspect]
     Indication: TOOTH EXTRACTION
     Dosage: 300MG EVERY 6 HOURS FOUR TIMES DAILY TAKEN BY MOUTH
     Route: 048
     Dates: start: 20140117, end: 20140122

REACTIONS (2)
  - Diarrhoea [None]
  - Dysbacteriosis [None]
